FAERS Safety Report 8890052 (Version 1)
Quarter: 2012Q4

REPORT INFORMATION
  Report Type: Spontaneous
  Country: US (occurrence: None)
  Receive Date: 20121105
  Receipt Date: 20121105
  Transmission Date: 20130627
  Serious: Yes (Life-Threatening, Other)
  Sender: FDA-Public Use
  Company Number: None

PATIENT
  Age: 63 Year
  Sex: Male
  Weight: 131.54 kg

DRUGS (1)
  1. PRADAXA [Suspect]
     Indication: ATRIAL FIBRILLATION
     Dosage: ONCE A DAY PO
     Route: 048
     Dates: start: 20110426, end: 20121009

REACTIONS (7)
  - Fall [None]
  - Haemorrhage [None]
  - Malaise [None]
  - Asthenia [None]
  - Disturbance in attention [None]
  - Blood urine present [None]
  - Abdominal pain upper [None]
